FAERS Safety Report 5102386-1 (Version None)
Quarter: 2006Q3

REPORT INFORMATION
  Report Type: 
  Country: None (occurrence: None)
  Receive Date: 20060907
  Receipt Date: 20060824
  Transmission Date: 20061208
  Serious: Yes (Hospitalization)
  Sender: FDA-Public Use
  Company Number: 2006BI011982

PATIENT
  Sex: Male

DRUGS (1)
  1. AVONEX [Suspect]
     Dosage: IM
     Route: 030

REACTIONS (1)
  - CARDIAC DISORDER [None]
